FAERS Safety Report 5909522-5 (Version None)
Quarter: 2008Q4

REPORT INFORMATION
  Report Type: 
  Country: None (occurrence: None)
  Receive Date: 20081002
  Receipt Date: 20080919
  Transmission Date: 20090506
  Serious: Yes (Life-Threatening, Hospitalization)
  Sender: FDA-Public Use
  Company Number: 2008SP017314

PATIENT
  Age: 29 Year
  Sex: Male

DRUGS (8)
  1. RIBAVIRIN [Suspect]
     Indication: HEPATITIS C
     Dosage: 400 MG;BID
     Dates: start: 20071006, end: 20080329
  2. COPEGUS [Suspect]
     Indication: HEPATITIS C
     Dosage: 400 MG;BID
     Dates: start: 20071006, end: 20080329
  3. REMERON [Suspect]
     Indication: SCHIZOPHRENIA, PARANOID TYPE
     Dosage: 30 MG;QD;PO
     Route: 048
     Dates: start: 20071119
  4. CLOZAPINE [Suspect]
     Indication: SCHIZOPHRENIA, PARANOID TYPE
     Dosage: 500 MG;QD;PO
     Route: 048
     Dates: start: 20060701, end: 20080401
  5. PEGASYS [Suspect]
     Indication: HEPATITIS C
     Dosage: 180 MCG;QW;SC
     Route: 058
     Dates: start: 20071006, end: 20080329
  6. LORAZEPAM [Concomitant]
  7. HALDOL [Concomitant]
  8. AKINETON [Concomitant]

REACTIONS (3)
  - AGRANULOCYTOSIS [None]
  - HEPATITIS C [None]
  - SUICIDE ATTEMPT [None]
